FAERS Safety Report 13228458 (Version 1)
Quarter: 2017Q1

REPORT INFORMATION
  Report Type: Spontaneous
  Country: US (occurrence: US)
  Receive Date: 20170213
  Receipt Date: 20170213
  Transmission Date: 20170428
  Serious: No
  Sender: FDA-Public Use
  Company Number: US-ROCHE-1855904

PATIENT
  Sex: Male
  Weight: 66.74 kg

DRUGS (13)
  1. ALECENSA [Suspect]
     Active Substance: ALECTINIB HYDROCHLORIDE
     Indication: PRODUCT USED FOR UNKNOWN INDICATION
     Dosage: TAKE 4 CAPSULES TWICE DAILY
     Route: 048
     Dates: start: 20160114
  2. COENZYME Q10 [Concomitant]
     Active Substance: UBIDECARENONE
     Route: 048
  3. PEPCID (UNITED STATES) [Concomitant]
  4. SENOKOT [Concomitant]
     Active Substance: SENNOSIDES
  5. REMERON [Concomitant]
     Active Substance: MIRTAZAPINE
  6. ROXICODONE [Concomitant]
     Active Substance: OXYCODONE HYDROCHLORIDE
  7. COUMADIN [Concomitant]
     Active Substance: WARFARIN SODIUM
     Route: 048
  8. KEPPRA [Concomitant]
     Active Substance: LEVETIRACETAM
     Route: 048
  9. DECADRON [Concomitant]
     Active Substance: DEXAMETHASONE
     Route: 048
  10. COLACE [Concomitant]
     Active Substance: DOCUSATE SODIUM
     Route: 048
  11. TYLENOL [Concomitant]
     Active Substance: ACETAMINOPHEN
  12. ZOCOR [Concomitant]
     Active Substance: SIMVASTATIN
  13. VITAMIN C [Concomitant]
     Active Substance: ASCORBIC ACID

REACTIONS (1)
  - Rash [Unknown]
